FAERS Safety Report 6609119-8 (Version None)
Quarter: 2010Q1

REPORT INFORMATION
  Report Type: 
  Country: None (occurrence: None)
  Receive Date: 20100301
  Receipt Date: 20100215
  Transmission Date: 20100710
  Serious: Yes (Hospitalization)
  Sender: FDA-Public Use
  Company Number: TW-MERCK-1002TWN00004

PATIENT
  Age: 65 Year
  Sex: Female

DRUGS (5)
  1. ZETIA [Suspect]
     Indication: HYPERLIPIDAEMIA
     Route: 048
  2. ZOLPIDEM TARTRATE [Suspect]
     Indication: INSOMNIA
     Route: 048
  3. BISOPROLOL [Concomitant]
     Indication: HYPERTENSION
     Route: 048
  4. NATEGLINIDE [Concomitant]
     Indication: DIABETES MELLITUS
     Route: 048
  5. CANDESARTAN [Concomitant]
     Indication: HYPERTENSION
     Route: 048

REACTIONS (6)
  - ANTEROGRADE AMNESIA [None]
  - ANXIETY [None]
  - CONFUSIONAL STATE [None]
  - MEDICATION ERROR [None]
  - PRODUCT LABEL CONFUSION [None]
  - REPETITIVE SPEECH [None]
